FAERS Safety Report 15458758 (Version 2)
Quarter: 2018Q4

REPORT INFORMATION
  Report Type: Spontaneous
  Country: SK (occurrence: SK)
  Receive Date: 20181003
  Receipt Date: 20181016
  Transmission Date: 20190204
  Serious: Yes (Death, Other)
  Sender: FDA-Public Use
  Company Number: SK-INCYTE CORPORATION-2018IN010017

PATIENT

DRUGS (2)
  1. KANAVIT                            /00032401/ [Concomitant]
     Active Substance: PHYTONADIONE
     Indication: PRODUCT USED FOR UNKNOWN INDICATION
     Dosage: UNK
     Route: 065
  2. JAKAVI [Suspect]
     Active Substance: RUXOLITINIB
     Indication: MYELOFIBROSIS
     Dosage: 1-2 DF QD
     Route: 065
     Dates: start: 20151218

REACTIONS (6)
  - Coma [Unknown]
  - Hemiparesis [Unknown]
  - Headache [Unknown]
  - Somnolence [Unknown]
  - Cerebral haemorrhage [Fatal]
  - Sopor [Unknown]
